FAERS Safety Report 10606503 (Version 1)
Quarter: 2014Q4

REPORT INFORMATION
  Report Type: Spontaneous
  Country: US (occurrence: None)
  Receive Date: 20141124
  Receipt Date: 20141124
  Transmission Date: 20150529
  Serious: No
  Sender: FDA-Public Use
  Company Number: None

PATIENT
  Age: 41 Year
  Sex: Male
  Weight: 95.26 kg

DRUGS (1)
  1. MELOXICAM. [Suspect]
     Active Substance: MELOXICAM
     Indication: INFLAMMATION
     Dosage: 1 DAILY, ONCE DAILY, TAKEN BY MOUTH
     Route: 048

REACTIONS (3)
  - Pruritus [None]
  - Blister [None]
  - Burning sensation [None]

NARRATIVE: CASE EVENT DATE: 20141118
